FAERS Safety Report 7124352-7 (Version None)
Quarter: 2010Q4

REPORT INFORMATION
  Report Type: 
  Country: None (occurrence: None)
  Receive Date: 20101126
  Receipt Date: 20101122
  Transmission Date: 20110411
  Serious: Yes (Death, Hospitalization)
  Sender: FDA-Public Use
  Company Number: PHHY2010CA79628

PATIENT
  Sex: Male
  Weight: 54 kg

DRUGS (1)
  1. EXELON [Suspect]
     Indication: DEMENTIA ALZHEIMER'S TYPE
     Dosage: UNK
     Route: 062

REACTIONS (3)
  - CARDIAC FAILURE [None]
  - EMBOLISM ARTERIAL [None]
  - METASTASIS [None]
